FAERS Safety Report 9432232 (Version 2)
Quarter: 2013Q3

REPORT INFORMATION
  Report Type: Spontaneous
  Country: US (occurrence: None)
  Receive Date: 20130729
  Receipt Date: 20130919
  Transmission Date: 20140515
  Serious: Yes (Hospitalization, Other)
  Sender: FDA-Public Use
  Company Number: HRA-MET20130025

PATIENT
  Age: 22 Year
  Sex: Female

DRUGS (2)
  1. METYRAPONE [Suspect]
     Indication: CUSHING^S SYNDROME
     Route: 048
     Dates: start: 20071016, end: 20071017
  2. KETOCONAZOLE [Concomitant]

REACTIONS (4)
  - Neutropenia [None]
  - Febrile neutropenia [None]
  - Oedema peripheral [None]
  - Ectopic ACTH syndrome [None]
